FAERS Safety Report 5061857-7 (Version None)
Quarter: 2006Q3

REPORT INFORMATION
  Report Type: 
  Country: None (occurrence: None)
  Receive Date: 20060720
  Receipt Date: 20060720
  Transmission Date: 20061208
  Serious: Yes (Hospitalization)
  Sender: FDA-Public Use
  Company Number: None

PATIENT
  Age: 85 Year
  Sex: Male
  Weight: 106.5953 kg

DRUGS (3)
  1. ASPIRIN [Suspect]
     Indication: PROPHYLAXIS
     Dosage: 325 MG DAILY
     Dates: start: 19990101, end: 20050421
  2. PREDNISONE [Suspect]
     Dosage: TAPERING
  3. . [Concomitant]

REACTIONS (4)
  - DUODENITIS [None]
  - GASTRITIS [None]
  - MELAENA [None]
  - OESOPHAGITIS [None]
